FAERS Safety Report 7230734-5 (Version None)
Quarter: 2011Q1

REPORT INFORMATION
  Report Type: 
  Country: None (occurrence: None)
  Receive Date: 20110118
  Receipt Date: 20110110
  Transmission Date: 20110831
  Serious: No
  Sender: FDA-Public Use
  Company Number: US-BAXTER-2010BH031127

PATIENT
  Age: 16 Year
  Sex: Female
  Weight: 56 kg

DRUGS (3)
  1. KETOROLAC TROMETHAMINE [Concomitant]
     Indication: PAIN
     Route: 042
     Dates: start: 20101229
  2. DEXAMETHASONE [Suspect]
     Indication: OROPHARYNGEAL PAIN
     Route: 042
     Dates: start: 20101229, end: 20101229
  3. DEXAMETHASONE [Suspect]
     Indication: ASTHMA
     Route: 042
     Dates: start: 20101229, end: 20101229

REACTIONS (3)
  - BURNING SENSATION [None]
  - PARAESTHESIA [None]
  - SCREAMING [None]
